FAERS Safety Report 11887824 (Version 1)
Quarter: 2016Q1

REPORT INFORMATION
  Report Type: Spontaneous
  Country: US (occurrence: US)
  Receive Date: 20160105
  Receipt Date: 20160105
  Transmission Date: 20160526
  Serious: No
  Sender: FDA-Public Use
  Company Number: US-DRREDDYS-USA/USA/15/0048076

PATIENT
  Sex: Male
  Weight: 74.8 kg

DRUGS (5)
  1. CLONAZEPAM. [Concomitant]
     Active Substance: CLONAZEPAM
     Indication: PRODUCT USED FOR UNKNOWN INDICATION
     Route: 065
  2. HABITROL [Suspect]
     Active Substance: NICOTINE
     Indication: SMOKING CESSATION THERAPY
     Route: 062
     Dates: start: 20141225
  3. HABITROL [Suspect]
     Active Substance: NICOTINE
     Route: 062
  4. RANITIDINE TABLETS 75 MG [Concomitant]
     Active Substance: RANITIDINE\RANITIDINE HYDROCHLORIDE
     Indication: PRODUCT USED FOR UNKNOWN INDICATION
     Route: 065
  5. HABITROL [Suspect]
     Active Substance: NICOTINE
     Route: 062

REACTIONS (3)
  - Nicotine dependence [Not Recovered/Not Resolved]
  - Weight increased [Not Recovered/Not Resolved]
  - Product quality issue [Unknown]
